FAERS Safety Report 8784982 (Version 3)
Quarter: 2012Q4

REPORT INFORMATION
  Report Type: 
  Country: US (occurrence: US)
  Receive Date: 20120914
  Receipt Date: 20121129
  Transmission Date: 20130627
  Serious: Yes (Hospitalization, Disabling, Other)
  Sender: FDA-Public Use
  Company Number: US-009507513-1204USA00529

PATIENT

DRUGS (9)
  1. FOSAMAX [Suspect]
     Indication: OSTEOPOROSIS
     Dosage: 70 mg, qw
     Route: 048
     Dates: start: 20021106, end: 200401
  2. FOSAMAX [Suspect]
     Indication: OSTEOPENIA
     Dosage: 35 mg, qw
     Route: 048
     Dates: start: 20040107, end: 200605
  3. FOSAMAX [Suspect]
     Dosage: 70 mg, qw
     Route: 048
     Dates: start: 200605, end: 200802
  4. ALENDRONATE SODIUM [Suspect]
     Indication: OSTEOPOROSIS
     Dosage: 70 mg, qw
     Route: 048
     Dates: start: 20080217, end: 200903
  5. ACTONEL [Suspect]
     Indication: OSTEOPOROSIS
     Dosage: 150 mg, qm
     Route: 048
     Dates: start: 20090316
  6. ZYRTEC [Concomitant]
     Indication: HYPERSENSITIVITY
     Dosage: UNK
     Dates: start: 20050427, end: 200702
  7. CALCIUM (UNSPECIFIED) (+) VITAMIN D (UNSPECIFIED) [Concomitant]
     Indication: OSTEOPOROSIS
     Dosage: 500-600 mg/ 200 units BID
     Dates: start: 20021105
  8. CALCIUM (UNSPECIFIED) (+) VITAMIN D (UNSPECIFIED) [Concomitant]
     Indication: OSTEOPENIA
  9. CITRACAL [Concomitant]

REACTIONS (60)
  - Femoral neck fracture [Unknown]
  - Surgery [Unknown]
  - Femur fracture [Unknown]
  - Intervertebral disc degeneration [Unknown]
  - Surgery [Unknown]
  - Neck surgery [Unknown]
  - Neck surgery [Unknown]
  - Neck surgery [Unknown]
  - Tooth fracture [Unknown]
  - Tooth fracture [Unknown]
  - Tooth disorder [Unknown]
  - Tooth disorder [Unknown]
  - Adverse event [Unknown]
  - Depression [Not Recovered/Not Resolved]
  - Hypercholesterolaemia [Unknown]
  - Hypertension [Unknown]
  - Vitamin D deficiency [Unknown]
  - Urinary tract infection [Unknown]
  - Irritable bowel syndrome [Unknown]
  - Inappropriate schedule of drug administration [Unknown]
  - Anxiety [Not Recovered/Not Resolved]
  - Pain [Unknown]
  - Infection [Unknown]
  - Infection [Unknown]
  - Large intestine polyp [Unknown]
  - Diverticulum [Unknown]
  - Chest pain [Recovered/Resolved]
  - Chondropathy [Unknown]
  - Toe operation [Unknown]
  - Fall [Unknown]
  - Arthropod bite [Unknown]
  - Fall [Unknown]
  - Osteoarthritis [Not Recovered/Not Resolved]
  - Furuncle [Recovered/Resolved]
  - Paraesthesia [Recovered/Resolved]
  - Pain [Unknown]
  - Hypoaesthesia [Recovered/Resolved]
  - Muscular weakness [Unknown]
  - Foot fracture [Unknown]
  - Laboratory test abnormal [Recovered/Resolved]
  - Migraine [Unknown]
  - Upper respiratory tract infection [Unknown]
  - Pneumonia [Unknown]
  - Upper respiratory tract infection [Unknown]
  - Vaginal infection [Unknown]
  - Fatigue [Unknown]
  - Drug withdrawal syndrome [Unknown]
  - Drug intolerance [Unknown]
  - Blood cholesterol increased [Unknown]
  - Constipation [Unknown]
  - Abdominal discomfort [Unknown]
  - Neck pain [Not Recovered/Not Resolved]
  - Nausea [Unknown]
  - Nausea [Unknown]
  - Arthralgia [Unknown]
  - Dysphagia [Unknown]
  - Pain in extremity [Unknown]
  - Back pain [Unknown]
  - Abdominal pain upper [Recovered/Resolved]
  - Nausea [Not Recovered/Not Resolved]
